FAERS Safety Report 9521370 (Version 1)
Quarter: 2013Q1

REPORT INFORMATION
  Report Type: Spontaneous
  Country: US (occurrence: None)
  Receive Date: 20130305
  Receipt Date: 20130305
  Transmission Date: 20140127
  Serious: Yes (Hospitalization)
  Sender: FDA-Public Use
  Company Number: 163-21880-12073138

PATIENT
  Age: 71 Year
  Sex: Male

DRUGS (25)
  1. REVLIMID [Suspect]
     Indication: PLASMA CELL MYELOMA
     Dosage: 15 MG, 21 IN 21 D, PO
     Route: 048
     Dates: start: 20120716, end: 20120720
  2. ADVAIR DISKUS (SERETIDE MITE) [Concomitant]
  3. ALLOPURINOL [Concomitant]
  4. AMIODARONE HCL (AMIODARONE HYDROCHLORIDE) [Concomitant]
  5. ASPIRIN (ACETYLALICYLIC ACID) [Concomitant]
  6. CRESTOR (ROSUVATATIN) [Concomitant]
  7. DEXAMETHASONE (DEXAMETHASONE) [Concomitant]
  8. DURAGESIC-50 (FENTANYL) [Concomitant]
  9. ENDOCET (OXYCOCET) [Concomitant]
  10. ADVIL PM (ADVIL PM) [Concomitant]
  11. ALEVE (NAPROXEN SODIUM) [Concomitant]
  12. BD INSULIN SYRINGE (B-INSULIN) [Concomitant]
  13. FLOMAX (TAMSULOSIN HYDROCHLORIDE) [Concomitant]
  14. LACTULOSE (LACTULOSE) [Concomitant]
  15. LANTUS (INSULIN GLARGINE) [Concomitant]
  16. LOMOTIL (LOMOTIL) [Concomitant]
  17. METOPROLOL TARTRATE (METOPROLOL TARTRATE) (TABLETS) (METOPROLOL TARTRATE) [Concomitant]
  18. MINOCYCLINE HCL (MINOCYCLINE HYDROCHLORIDE) [Concomitant]
  19. ONE TOUCH ULTRA STRIP [Concomitant]
  20. PERCOCET (OXYCOCET) [Concomitant]
  21. PROTONIX [Concomitant]
  22. VITAMIN C [Concomitant]
  23. GLIPIZIDE (GLIPIZIDE) [Concomitant]
  24. METFORMIN (METFORMIN) [Concomitant]
  25. PRADAXA (DABIGATRAN ETEXILATE MESILATE) [Concomitant]

REACTIONS (6)
  - Blood calcium decreased [None]
  - Renal impairment [None]
  - Full blood count decreased [None]
  - Platelet count decreased [None]
  - White blood cell count decreased [None]
  - Neutrophil count decreased [None]
